FAERS Safety Report 7113829-6 (Version None)
Quarter: 2010Q4

REPORT INFORMATION
  Report Type: 
  Country: None (occurrence: None)
  Receive Date: 20101119
  Receipt Date: 20101116
  Transmission Date: 20110411
  Serious: No
  Sender: FDA-Public Use
  Company Number: US-MERCK-1009USA03773

PATIENT
  Age: 29 Month
  Sex: Male
  Weight: 13 kg

DRUGS (2)
  1. SINGULAIR [Suspect]
     Indication: ASTHMA
     Route: 048
     Dates: start: 20080304, end: 20080318
  2. SINGULAIR [Suspect]
     Indication: HYPERSENSITIVITY
     Route: 048
     Dates: start: 20080304, end: 20080318

REACTIONS (2)
  - SCREAMING [None]
  - SLEEP TERROR [None]
